FAERS Safety Report 5692109-X (Version None)
Quarter: 2008Q1

REPORT INFORMATION
  Report Type: 
  Country: None (occurrence: None)
  Receive Date: 20080331
  Receipt Date: 20080318
  Transmission Date: 20080703
  Serious: Yes (Death, Hospitalization)
  Sender: FDA-Public Use
  Company Number: T07-JPN-06341-01

PATIENT
  Age: 84 Year
  Sex: Female

DRUGS (8)
  1. MEMANTINE HCL [Suspect]
     Indication: DEMENTIA ALZHEIMER'S TYPE
     Dosage: 20 MG QD PO
     Route: 048
     Dates: start: 20070525, end: 20071119
  2. MEMANTINE HCL [Suspect]
     Indication: DEMENTIA ALZHEIMER'S TYPE
     Dosage: 20 MG QD PO
     Route: 048
     Dates: start: 20050927, end: 20070519
  3. DONEPEZIL HCL [Concomitant]
  4. PROPIVERINE [Concomitant]
  5. ANTIBIOTIC-RESISTANT LACTIC ACID BACTERIA [Concomitant]
  6. MAGNESIUM OXIDE [Concomitant]
  7. TRIMEBUTINE [Concomitant]
  8. GLYBURIDE [Concomitant]

REACTIONS (17)
  - ALANINE AMINOTRANSFERASE INCREASED [None]
  - ASPARTATE AMINOTRANSFERASE INCREASED [None]
  - BLOOD ALBUMIN DECREASED [None]
  - BLOOD ALKALINE PHOSPHATASE INCREASED [None]
  - BLOOD CHOLINESTERASE DECREASED [None]
  - BLOOD CREATININE INCREASED [None]
  - BLOOD GLUCOSE INCREASED [None]
  - BLOOD UREA INCREASED [None]
  - CHOLECYSTITIS [None]
  - CHOLELITHIASIS [None]
  - DECREASED APPETITE [None]
  - ENTERITIS INFECTIOUS [None]
  - FEMORAL NECK FRACTURE [None]
  - GAMMA-GLUTAMYLTRANSFERASE INCREASED [None]
  - PNEUMONIA [None]
  - PNEUMONIA ASPIRATION [None]
  - SEPSIS [None]
